FAERS Safety Report 7254880-5 (Version None)
Quarter: 2011Q1

REPORT INFORMATION
  Report Type: 
  Country: None (occurrence: None)
  Receive Date: 20110129
  Receipt Date: 20100317
  Transmission Date: 20110831
  Serious: No
  Sender: FDA-Public Use
  Company Number: US-ABBOTT-10P-163-0633592-00

PATIENT
  Sex: Female
  Weight: 59.02 kg

DRUGS (2)
  1. HUMIRA [Suspect]
     Indication: RHEUMATOID ARTHRITIS
     Route: 058
  2. HUMIRA [Suspect]
     Indication: AUTOIMMUNE DISORDER
     Route: 058
     Dates: start: 20080401

REACTIONS (7)
  - SINUS HEADACHE [None]
  - WHEEZING [None]
  - COUGH [None]
  - SNEEZING [None]
  - UPPER-AIRWAY COUGH SYNDROME [None]
  - NASAL CONGESTION [None]
  - LOWER RESPIRATORY TRACT INFECTION [None]
